FAERS Safety Report 13263929 (Version 1)
Quarter: 2017Q1

REPORT INFORMATION
  Report Type: Spontaneous
  Country: US (occurrence: US)
  Receive Date: 20170222
  Receipt Date: 20170222
  Transmission Date: 20170428
  Serious: Yes (Hospitalization)
  Sender: FDA-Public Use
  Company Number: None

PATIENT
  Age: 28 Year
  Sex: Female

DRUGS (5)
  1. HYDROCO/APAP [Concomitant]
     Active Substance: ACETAMINOPHEN\HYDROCODONE
  2. FOLIC ACID. [Concomitant]
     Active Substance: FOLIC ACID
  3. VENTOLIN HFA [Concomitant]
     Active Substance: ALBUTEROL SULFATE
  4. HYDROMORPHON [Concomitant]
     Active Substance: HYDROMORPHONE
  5. JADENU [Suspect]
     Active Substance: DEFERASIROX
     Indication: NEOPLASM
     Route: 048
     Dates: start: 20160920

REACTIONS (1)
  - Hospitalisation [None]

NARRATIVE: CASE EVENT DATE: 201611
